FAERS Safety Report 15949996 (Version 1)
Quarter: 2019Q1

REPORT INFORMATION
  Report Type: Spontaneous
  Country: US (occurrence: US)
  Receive Date: 20190211
  Receipt Date: 20190211
  Transmission Date: 20190417
  Serious: Yes (Hospitalization)
  Sender: FDA-Public Use
  Company Number: US-OTSUKA-2018_023872

PATIENT
  Sex: Female

DRUGS (2)
  1. ABILIFY [Suspect]
     Active Substance: ARIPIPRAZOLE
     Indication: DEPRESSION
  2. ABILIFY [Suspect]
     Active Substance: ARIPIPRAZOLE
     Indication: MAJOR DEPRESSION
     Dosage: UNK
     Route: 065

REACTIONS (9)
  - Obsessive-compulsive disorder [Unknown]
  - Homeless [Unknown]
  - Bankruptcy [Unknown]
  - Divorced [Unknown]
  - Mental disorder [Unknown]
  - Compulsive shopping [Unknown]
  - Gambling disorder [Unknown]
  - Economic problem [Unknown]
  - Loss of employment [Unknown]

NARRATIVE: CASE EVENT DATE: 2007
